FAERS Safety Report 8610233 (Version 2)
Quarter: 2014Q1

REPORT INFORMATION
  Report Type: Spontaneous
  Country: US (occurrence: None)
  Receive Date: 20120323
  Receipt Date: 20130305
  Transmission Date: 20141002
  Serious: Yes (Hospitalization)
  Sender: FDA-Public Use
  Company Number: 163-21880-11093587

PATIENT
  Age: 78 Year
  Sex: Male

DRUGS (18)
  1. REVLIMID [Suspect]
     Indication: PLASMA CELL MYELOMA
     Route: 048
     Dates: start: 200812
  2. NEURONTIN (GABAPENTIN) [Concomitant]
  3. CLONZAEPAM [Concomitant]
  4. LASIX (FUROSEMIDE) [Concomitant]
  5. CHOLESTYRAMINE [Concomitant]
  6. DIGOXIN [Concomitant]
  7. FINASTERIDE [Concomitant]
  8. FLUDROCORTISONE [Concomitant]
  9. ASPIRIN (ACETYLSALICYLIC ACID) [Concomitant]
  10. CARVEDILOL [Concomitant]
  11. KLOR CON (POTASSIUM CHLORIDE) [Concomitant]
  12. LISINOPRIL [Concomitant]
  13. MULTIVITAMINS [Concomitant]
  14. PRILOSEC (OMEPRAZOLE) [Concomitant]
  15. TAMSULOSIN [Concomitant]
  16. PERCOCET (OXYCOCET) [Concomitant]
  17. ACETAMINOPHEN (PARACETAMOL) [Concomitant]
  18. MILK OF MAGNESIA (MAGNESIUM HYDROXIDE) [Concomitant]

REACTIONS (3)
  - Bacterial infection [None]
  - Clostridial infection [None]
  - Clostridium difficile infection [None]
